FAERS Safety Report 4580772-6 (Version None)
Quarter: 2005Q1

REPORT INFORMATION
  Report Type: 
  Country: None (occurrence: None)
  Receive Date: 20050214
  Receipt Date: 20040601
  Transmission Date: 20050727
  Serious: No
  Sender: FDA-Public Use
  Company Number: US-GLAXOSMITHKLINE-A0512889A

PATIENT
  Age: 68 Year
  Sex: Male

DRUGS (2)
  1. LAMICTAL [Suspect]
     Dosage: 400MG PER DAY
     Route: 048
  2. DILANTIN [Concomitant]

REACTIONS (1)
  - ALOPECIA [None]
